FAERS Safety Report 5919180-1 (Version None)
Quarter: 2008Q4

REPORT INFORMATION
  Report Type: 
  Country: None (occurrence: None)
  Receive Date: 20081015
  Receipt Date: 20081002
  Transmission Date: 20090506
  Serious: No
  Sender: FDA-Public Use
  Company Number: JP-MERCK-0809USA04661

PATIENT
  Age: 74 Year
  Sex: Female

DRUGS (8)
  1. FOSAMAX [Suspect]
     Indication: OSTEOPOROSIS
     Route: 048
     Dates: start: 20080911, end: 20080911
  2. MUCOSOLVAN-L [Concomitant]
     Indication: ASTHMA
     Route: 048
     Dates: start: 20080327
  3. URSO 250 [Concomitant]
     Route: 065
     Dates: start: 20080327
  4. PURSENNID [Concomitant]
     Route: 048
     Dates: start: 20080327
  5. TAKEPRON [Concomitant]
     Route: 048
     Dates: start: 20080327
  6. LOXONIN [Concomitant]
     Route: 048
     Dates: start: 20080327
  7. FLAVITAN [Concomitant]
     Route: 048
     Dates: start: 20080327
  8. JUVELA N [Concomitant]
     Route: 048
     Dates: start: 20080417

REACTIONS (1)
  - BLOOD CREATINE PHOSPHOKINASE INCREASED [None]
